FAERS Safety Report 9491455 (Version 2)
Quarter: 2013Q1

REPORT INFORMATION
  Report Type: Not Available
  Country: US (occurrence: US)
  Receive Date: 20120619
  Receipt Date: 20120619
  Transmission Date: 20140127
  Serious: No
  Sender: FDA-Public Use
  Company Number: US-LUNDBECK-DKLU1077085

PATIENT
  Sex: Male

DRUGS (3)
  1. ONFI [Suspect]
     Indication: EPILEPSY
     Route: 048
  2. LAMICTAL [Concomitant]
     Indication: EPILEPSY
  3. TOPAMAX [Concomitant]
     Indication: EPILEPSY

REACTIONS (7)
  - Swelling [Unknown]
  - Aphagia [Unknown]
  - Aggression [Unknown]
  - Drooling [Unknown]
  - Pyrexia [Unknown]
  - Rash [Unknown]
  - Constipation [Unknown]
